FAERS Safety Report 4567227-X (Version None)
Quarter: 2005Q1

REPORT INFORMATION
  Report Type: 
  Country: None (occurrence: None)
  Receive Date: 20050127
  Receipt Date: 20050118
  Transmission Date: 20050727
  Serious: No
  Sender: FDA-Public Use
  Company Number: TPA2005A00077

PATIENT
  Sex: Female

DRUGS (1)
  1. ACTOS [Suspect]
     Dosage: PER ORAL
     Route: 048

REACTIONS (1)
  - MEDICATION ERROR [None]
